FAERS Safety Report 6998003-6 (Version None)
Quarter: 2010Q3

REPORT INFORMATION
  Report Type: 
  Country: None (occurrence: None)
  Receive Date: 20100920
  Receipt Date: 20071120
  Transmission Date: 20110219
  Serious: Yes (Other)
  Sender: FDA-Public Use
  Company Number: US-ASTRAZENECA-2006UW22109

PATIENT
  Age: 55 Year
  Sex: Female
  Weight: 79.8 kg

DRUGS (2)
  1. SEROQUEL [Suspect]
     Route: 048
     Dates: start: 20051024
  2. OXYCONTIN [Concomitant]
     Route: 048
     Dates: start: 20060130

REACTIONS (5)
  - DIABETES MELLITUS [None]
  - PANCREATIC DISORDER [None]
  - PANCREATITIS [None]
  - PANCREATITIS CHRONIC [None]
  - TYPE 2 DIABETES MELLITUS [None]
